FAERS Safety Report 25711129 (Version 1)
Quarter: 2025Q3

REPORT INFORMATION
  Report Type: Spontaneous
  Country: CN (occurrence: CN)
  Receive Date: 20250821
  Receipt Date: 20250821
  Transmission Date: 20251020
  Serious: Yes (Other)
  Sender: BAUSCH AND LOMB
  Company Number: CN-BAUSCH-BH-2025-016532

PATIENT
  Age: 43 Year
  Sex: Female
  Weight: 51 kg

DRUGS (2)
  1. RIFAXIMIN [Suspect]
     Active Substance: RIFAXIMIN
     Indication: Enterovirus infection
     Dosage: 0.4 G, BID
     Route: 048
     Dates: start: 20250722, end: 20250727
  2. BISOPROLOL FUMARATE [Suspect]
     Active Substance: BISOPROLOL FUMARATE
     Indication: Heart rate increased
     Dosage: 5.0 MG, QD
     Route: 048
     Dates: start: 20250724, end: 20250727

REACTIONS (2)
  - Hepatic function abnormal [Recovering/Resolving]
  - Off label use [Recovered/Resolved]

NARRATIVE: CASE EVENT DATE: 20250722
